FAERS Safety Report 6832729-X (Version None)
Quarter: 2010Q3

REPORT INFORMATION
  Report Type: 
  Country: None (occurrence: None)
  Receive Date: 20100712
  Receipt Date: 20100628
  Transmission Date: 20110219
  Serious: Yes (Disabling)
  Sender: FDA-Public Use
  Company Number: GB-MYLANLABS-2010S1010613

PATIENT
  Age: 24 Year
  Sex: Male

DRUGS (5)
  1. CIPROFLOXACIN [Suspect]
     Indication: HODGKIN'S DISEASE
  2. ETHAMBUTOL HYDROCHLORIDE [Suspect]
     Indication: HODGKIN'S DISEASE
  3. ISONIAZID [Suspect]
     Indication: HODGKIN'S DISEASE
  4. PREDNISOLONE [Suspect]
     Indication: HODGKIN'S DISEASE
  5. RIFATER [Suspect]
     Indication: HODGKIN'S DISEASE

REACTIONS (4)
  - COLOUR BLINDNESS [None]
  - LIVER FUNCTION TEST ABNORMAL [None]
  - NAUSEA [None]
  - NEUROPATHY PERIPHERAL [None]
